FAERS Safety Report 4543901-6 (Version None)
Quarter: 2005Q1

REPORT INFORMATION
  Report Type: 
  Country: None (occurrence: None)
  Receive Date: 20050103
  Receipt Date: 20041208
  Transmission Date: 20050727
  Serious: Yes (Hospitalization)
  Sender: FDA-Public Use
  Company Number: PHBS2004TR16608

PATIENT
  Sex: Female

DRUGS (1)
  1. STALEVO(ENTACAPONE, LEVODOPA, CARBIDOPA) TABLET [Suspect]
     Indication: PARKINSON'S DISEASE
     Dosage: 200 MG/D, ORAL
     Route: 048
     Dates: end: 20041207

REACTIONS (3)
  - CONFUSIONAL STATE [None]
  - EPILEPSY [None]
  - MENTAL IMPAIRMENT [None]
